FAERS Safety Report 6045435-9 (Version None)
Quarter: 2009Q1

REPORT INFORMATION
  Report Type: 
  Country: None (occurrence: None)
  Receive Date: 20090121
  Receipt Date: 20090113
  Transmission Date: 20090719
  Serious: Yes (Hospitalization)
  Sender: FDA-Public Use
  Company Number: TN-AVENTIS-200910062FR

PATIENT
  Age: 27 Year
  Sex: Male

DRUGS (4)
  1. METRONIDAZOLE [Suspect]
     Indication: BRAIN ABSCESS
  2. CEFOTAXIME [Concomitant]
     Indication: BRAIN ABSCESS
  3. TETRACOSIDE [Concomitant]
  4. THIAMPHENICOL [Concomitant]
     Indication: BRAIN ABSCESS

REACTIONS (3)
  - CEREBELLAR SYNDROME [None]
  - PARAESTHESIA [None]
  - PERIPHERAL SENSORY NEUROPATHY [None]
